FAERS Safety Report 5188781-3 (Version None)
Quarter: 2006Q4

REPORT INFORMATION
  Report Type: 
  Country: None (occurrence: None)
  Receive Date: 20061215
  Receipt Date: 20060913
  Transmission Date: 20070319
  Serious: Yes (Life-Threatening)
  Sender: FDA-Public Use
  Company Number: 2006SP001905

PATIENT
  Sex: Male

DRUGS (2)
  1. PEG-INTRON [Suspect]
     Indication: HEPATITIS C
  2. MYCOBUTIN [Suspect]
     Indication: HEPATITIS C
     Dosage: 200 MG; PO
     Route: 048

REACTIONS (8)
  - DRUG DISPENSING ERROR [None]
  - FEELING ABNORMAL [None]
  - IMMUNE SYSTEM DISORDER [None]
  - INCORRECT DOSE ADMINISTERED [None]
  - INFECTION [None]
  - RENAL DISORDER [None]
  - SUICIDAL IDEATION [None]
  - WRONG DRUG ADMINISTERED [None]
